FAERS Safety Report 9356336 (Version 1)
Quarter: 2013Q2

REPORT INFORMATION
  Report Type: Spontaneous
  Country: US (occurrence: None)
  Receive Date: 20130614
  Receipt Date: 20130614
  Transmission Date: 20140414
  Serious: Yes (Hospitalization, Other)
  Sender: FDA-Public Use
  Company Number: 2013P1006975

PATIENT
  Age: 19 Year
  Sex: Female

DRUGS (1)
  1. AMLODIPINE [Suspect]
     Indication: INTENTIONAL OVERDOSE
     Route: 048

REACTIONS (12)
  - Metabolic alkalosis [None]
  - Pain [None]
  - Tachycardia [None]
  - Hyperglycaemia [None]
  - Metabolic acidosis [None]
  - Fatigue [None]
  - Asthenia [None]
  - Intentional overdose [None]
  - Sinus tachycardia [None]
  - Hypotension [None]
  - Angioedema [None]
  - Toxicity to various agents [None]
